FAERS Safety Report 6723466-0 (Version None)
Quarter: 2010Q2

REPORT INFORMATION
  Report Type: 
  Country: None (occurrence: None)
  Receive Date: 20100511
  Receipt Date: 20100430
  Transmission Date: 20101027
  Serious: Yes (Hospitalization, Other)
  Sender: FDA-Public Use
  Company Number: MOZO-1000301

PATIENT
  Age: 62 Year
  Sex: Male
  Weight: 102 kg

DRUGS (8)
  1. MOZOBIL [Suspect]
     Indication: HAEMATOPOIETIC STEM CELL MOBILISATION
     Dosage: 240 MCG/KG, QD,SUBCUTANEOUS
     Route: 058
     Dates: start: 20091221, end: 20091222
  2. MOZOBIL [Suspect]
     Indication: MULTIPLE MYELOMA
     Dosage: 240 MCG/KG, QD,SUBCUTANEOUS
     Route: 058
     Dates: start: 20091221, end: 20091222
  3. NEUPOGEN [Concomitant]
  4. LISINOPRIL (LISONPRIL) [Concomitant]
  5. BENDROFLUAZIDE (BENDROFLUMETHIAZIDE) [Concomitant]
  6. ATENOLOL [Concomitant]
  7. OXYCONTIN [Concomitant]
  8. OXYCODONE HCL [Concomitant]

REACTIONS (5)
  - ABDOMINAL PAIN UPPER [None]
  - ANGINA PECTORIS [None]
  - BLOOD VISCOSITY INCREASED [None]
  - LEUKOCYTOSIS [None]
  - MYOCARDIAL INFARCTION [None]
